FAERS Safety Report 9819470 (Version 1)
Quarter: 2014Q1

REPORT INFORMATION
  Report Type: Spontaneous
  Country: JP (occurrence: JP)
  Receive Date: 20140115
  Receipt Date: 20140115
  Transmission Date: 20141002
  Serious: Yes (Other)
  Sender: FDA-Public Use
  Company Number: JP-PFIZER INC-2014012836

PATIENT
  Age: 84 Year
  Sex: Female

DRUGS (1)
  1. LYRICA [Suspect]
     Indication: SCIATICA
     Dosage: UNK
     Route: 048

REACTIONS (5)
  - Fracture [Unknown]
  - Fall [Unknown]
  - Dizziness [Unknown]
  - Diarrhoea [Unknown]
  - Urinary incontinence [Unknown]
